FAERS Safety Report 24440581 (Version 1)
Quarter: 2024Q4

REPORT INFORMATION
  Report Type: Spontaneous
  Country: MY (occurrence: MY)
  Receive Date: 20241016
  Receipt Date: 20241016
  Transmission Date: 20250115
  Serious: Yes (Hospitalization)
  Sender: ACCORD
  Company Number: MY-MLMSERVICE-20241002-PI215359-00270-1

PATIENT
  Age: 33 Year
  Sex: Female

DRUGS (2)
  1. MYCOPHENOLATE MOFETIL [Suspect]
     Active Substance: MYCOPHENOLATE MOFETIL
     Indication: Lupus nephritis
     Dates: start: 2023
  2. PREDNISOLONE [Suspect]
     Active Substance: PREDNISOLONE
     Indication: Lupus nephritis
     Dates: start: 2023

REACTIONS (4)
  - Listeriosis [Recovering/Resolving]
  - Meningitis [Recovering/Resolving]
  - Brain abscess [Recovering/Resolving]
  - Bacteraemia [Recovering/Resolving]
